FAERS Safety Report 8518330-0 (Version None)
Quarter: 2012Q3

REPORT INFORMATION
  Report Type: 
  Country: None (occurrence: None)
  Receive Date: 20120718
  Receipt Date: 20120130
  Transmission Date: 20120928
  Serious: No
  Sender: FDA-Public Use
  Company Number: US-BRISTOL-MYERS SQUIBB COMPANY-16374555

PATIENT
  Age: 48 Year
  Sex: Female
  Weight: 119 kg

DRUGS (5)
  1. REVATIO [Suspect]
     Route: 065
  2. LETAIRIS [Suspect]
     Indication: PULMONARY ARTERIAL HYPERTENSION
     Dosage: FORM: TABS
     Route: 048
  3. OXYGEN [Suspect]
  4. COUMADIN [Suspect]
     Route: 065
  5. TREPROSTINIL [Suspect]
     Route: 065

REACTIONS (1)
  - EPISTAXIS [None]
